FAERS Safety Report 16717867 (Version 3)
Quarter: 2019Q4

REPORT INFORMATION
  Report Type: Spontaneous
  Country: BR (occurrence: BR)
  Receive Date: 20190819
  Receipt Date: 20191028
  Transmission Date: 20200122
  Serious: Yes (Other)
  Sender: FDA-Public Use
  Company Number: BR-ALLERGAN-1934002US

PATIENT
  Sex: Female
  Weight: 75 kg

DRUGS (21)
  1. CEFTAROLINE FOSAMIL - BP [Suspect]
     Active Substance: CEFTAROLINE FOSAMIL
     Indication: PYODERMA GANGRENOSUM
  2. DRAMIN B6 [Concomitant]
  3. LUFTAL [Concomitant]
     Active Substance: DIMETHICONE
  4. ONDANSETRON [Concomitant]
     Active Substance: ONDANSETRON
  5. ESCITALOPRAM [Concomitant]
     Active Substance: ESCITALOPRAM OXALATE
  6. RIVOTRIL [Concomitant]
     Active Substance: CLONAZEPAM
  7. ZOLPIDEM [Concomitant]
     Active Substance: ZOLPIDEM TARTRATE
  8. CLEXANE [Concomitant]
     Active Substance: ENOXAPARIN SODIUM
  9. DOMPERIDONE [Concomitant]
     Active Substance: DOMPERIDONE
  10. MORPHINE [Concomitant]
     Active Substance: MORPHINE
  11. PANTOPRAZOLE [Concomitant]
     Active Substance: PANTOPRAZOLE
  12. PREDNISONE. [Concomitant]
     Active Substance: PREDNISONE
  13. KETOROLAC [Concomitant]
     Active Substance: KETOROLAC TROMETHAMINE
  14. CEFTAROLINE FOSAMIL - BP [Suspect]
     Active Substance: CEFTAROLINE FOSAMIL
     Indication: CELLULITIS GANGRENOUS
     Dosage: 600 MG, Q12H
     Route: 042
     Dates: start: 20190517, end: 20190528
  15. BUSCOPAN [Concomitant]
     Active Substance: BUTYLSCOPOLAMINE BROMIDE
  16. OXYCODONE [Concomitant]
     Active Substance: OXYCODONE
  17. BENADRYL [Concomitant]
     Active Substance: DIPHENHYDRAMINE HYDROCHLORIDE
  18. NYSTATIN. [Concomitant]
     Active Substance: NYSTATIN
  19. SLOW K [Concomitant]
     Active Substance: POTASSIUM CHLORIDE
  20. DIPYRONE [Concomitant]
     Active Substance: DIPYRONE
  21. LASIX [Concomitant]
     Active Substance: FUROSEMIDE

REACTIONS (2)
  - Hypophosphataemia [Unknown]
  - Hypokalaemia [Unknown]

NARRATIVE: CASE EVENT DATE: 20190518
